FAERS Safety Report 14779712 (Version 1)
Quarter: 2018Q2

REPORT INFORMATION
  Report Type: Report from Study
  Country: FR (occurrence: FR)
  Receive Date: 20180419
  Receipt Date: 20180419
  Transmission Date: 20180711
  Serious: Yes (Other)
  Sender: FDA-Public Use
  Company Number: FR-MYLANLABS-2018M1024172

PATIENT
  Age: 34 Year
  Sex: Male

DRUGS (1)
  1. CELECOXIB. [Suspect]
     Active Substance: CELECOXIB
     Indication: ASPIRIN-EXACERBATED RESPIRATORY DISEASE
     Dosage: 100MG
     Route: 048

REACTIONS (2)
  - Forced expiratory volume decreased [Recovered/Resolved]
  - Rhinitis [Recovered/Resolved]
